FAERS Safety Report 15337322 (Version 1)
Quarter: 2018Q3

REPORT INFORMATION
  Report Type: Spontaneous
  Country: US (occurrence: US)
  Receive Date: 20180831
  Receipt Date: 20180831
  Transmission Date: 20181010
  Serious: Yes (Other)
  Sender: FDA-Public Use
  Company Number: US-HORIZON-PRE-0395-2018

PATIENT
  Age: 31 Year
  Sex: Female

DRUGS (2)
  1. METHYLPREDNISOLONE. [Suspect]
     Active Substance: METHYLPREDNISOLONE
     Indication: PULMONARY SARCOIDOSIS
     Dosage: 1 G EVERY 24 HOURS
     Route: 042
  2. PREDNISONE. [Suspect]
     Active Substance: PREDNISONE
     Indication: PULMONARY SARCOIDOSIS
     Dosage: 60 MG DAILY
     Route: 048

REACTIONS (5)
  - Coordination abnormal [Unknown]
  - Osteonecrosis [Unknown]
  - Insomnia [Unknown]
  - Ankle fracture [Unknown]
  - Hyperglycaemia [Unknown]
